FAERS Safety Report 22352428 (Version 1)
Quarter: 2023Q2

REPORT INFORMATION
  Report Type: Spontaneous
  Country: SA (occurrence: US)
  Receive Date: 20230522
  Receipt Date: 20230522
  Transmission Date: 20230721
  Serious: Yes (Other)
  Sender: FDA-Public Use
  Company Number: SA-BIOGEN-2023BI01206276

PATIENT
  Age: 12 Year
  Sex: Male

DRUGS (1)
  1. SPINRAZA [Suspect]
     Active Substance: NUSINERSEN
     Indication: Spinal muscular atrophy
     Route: 050

REACTIONS (5)
  - Magnetic resonance imaging head abnormal [Unknown]
  - Procedural pain [Unknown]
  - Post procedural complication [Unknown]
  - Sensory level abnormal [Unknown]
  - Muscular weakness [Unknown]
